FAERS Safety Report 5748063-5 (Version None)
Quarter: 2008Q2

REPORT INFORMATION
  Report Type: 
  Country: None (occurrence: None)
  Receive Date: 20080523
  Receipt Date: 20080515
  Transmission Date: 20081010
  Serious: Yes (Death, Hospitalization)
  Sender: FDA-Public Use
  Company Number: FR-AMGEN-US281153

PATIENT
  Age: 72 Year
  Sex: Female

DRUGS (1)
  1. ENBREL [Suspect]
     Indication: ARTHRALGIA
     Dosage: 1 DOSE FORM; FREQUENCY UNSPECIFIED, REPORTEDLY DEPENDING ON THE CYCLE
     Route: 058
     Dates: start: 20050101

REACTIONS (3)
  - HYPOXIA [None]
  - LUNG DISORDER [None]
  - PYREXIA [None]
